FAERS Safety Report 4451119-0 (Version None)
Quarter: 2004Q3

REPORT INFORMATION
  Report Type: 
  Country: None (occurrence: None)
  Receive Date: 20040913
  Receipt Date: 20040616
  Transmission Date: 20050211
  Serious: No
  Sender: FDA-Public Use
  Company Number: 2004-BP-04843BP(0)

PATIENT
  Age: 81 Year
  Sex: Male

DRUGS (11)
  1. SPIRIVA [Suspect]
     Dosage: 18 MCG (18 MCG), IH
     Dates: start: 20040601, end: 20040609
  2. CALCIUM (CALCIUM/N/A/) [Concomitant]
  3. MULTIVITAMIN [Concomitant]
  4. ASPIRIN [Concomitant]
  5. LIPITOR [Concomitant]
  6. LISINOPRIL [Concomitant]
  7. RABEPRAZOLE SODIUM [Concomitant]
  8. METOPROLOL TARTRATE [Concomitant]
  9. FUROSEMIDE [Concomitant]
  10. IMDUR [Concomitant]
  11. DUONEB [Concomitant]

REACTIONS (4)
  - COUGH [None]
  - DIZZINESS [None]
  - DRY THROAT [None]
  - VISUAL DISTURBANCE [None]
